FAERS Safety Report 7889157-8 (Version None)
Quarter: 2011Q4

REPORT INFORMATION
  Report Type: 
  Country: None (occurrence: None)
  Receive Date: 20111103
  Receipt Date: 20111028
  Transmission Date: 20120403
  Serious: Yes (Death)
  Sender: FDA-Public Use
  Company Number: JP-PFIZER INC-2011247230

PATIENT
  Age: 60 Year
  Sex: Male
  Weight: 56 kg

DRUGS (4)
  1. OXYCONTIN [Concomitant]
     Indication: RENAL CELL CARCINOMA
     Dosage: 20 MG, 2X/DAY
     Route: 048
     Dates: start: 20100118, end: 20110321
  2. MOBIC [Concomitant]
     Indication: RENAL CELL CARCINOMA
     Dosage: 10 MG, 1X/DAY
     Route: 048
     Dates: start: 20100118, end: 20110321
  3. TEMSIROLIMUS [Suspect]
     Indication: RENAL CELL CARCINOMA
     Dosage: 25 MG, WEEKLY
     Dates: start: 20110228
  4. POLARAMINE [Concomitant]
     Indication: PROPHYLAXIS
     Dosage: 5 MG, 1X/DAY
     Route: 042

REACTIONS (2)
  - DISEASE PROGRESSION [None]
  - RENAL CELL CARCINOMA [None]
